FAERS Safety Report 17891417 (Version 3)
Quarter: 2020Q3

REPORT INFORMATION
  Report Type: Report from Study
  Country: US (occurrence: US)
  Receive Date: 20200612
  Receipt Date: 20200722
  Transmission Date: 20201103
  Serious: Yes (Hospitalization)
  Sender: FDA-Public Use
  Company Number: US-GILEAD-2020-0471660

PATIENT
  Age: 48 Year
  Sex: Female
  Weight: 80.73 kg

DRUGS (18)
  1. AMLODIPINE [Concomitant]
     Active Substance: AMLODIPINE BESYLATE
  2. HYDROXYZINE [Concomitant]
     Active Substance: HYDROXYZINE HYDROCHLORIDE
  3. BACTROBAN [Concomitant]
     Active Substance: MUPIROCIN\MUPIROCIN CALCIUM
  4. VENLAFAXINE [Concomitant]
     Active Substance: VENLAFAXINE HYDROCHLORIDE
  5. FUROSEMIDE. [Concomitant]
     Active Substance: FUROSEMIDE
  6. IRON [Concomitant]
     Active Substance: IRON
  7. PRAZOSIN. [Concomitant]
     Active Substance: PRAZOSIN
  8. RISPERDAL [Concomitant]
     Active Substance: RISPERIDONE
  9. BENZTROPINE MESILATE [Concomitant]
     Active Substance: BENZTROPINE MESYLATE
  10. VALTREX [Concomitant]
     Active Substance: VALACYCLOVIR HYDROCHLORIDE
  11. KEPPRA [Concomitant]
     Active Substance: LEVETIRACETAM
  12. AMBRISENTAN [Suspect]
     Active Substance: AMBRISENTAN
     Indication: PULMONARY HYPERTENSION
     Dosage: 10 MG, QD
     Route: 048
     Dates: start: 20180812
  13. SPIRONOLACTONE. [Concomitant]
     Active Substance: SPIRONOLACTONE
  14. SILDENAFIL CITRATE. [Concomitant]
     Active Substance: SILDENAFIL CITRATE
  15. ZYRTEC [Concomitant]
     Active Substance: CETIRIZINE HYDROCHLORIDE
  16. ELIQUIS [Concomitant]
     Active Substance: APIXABAN
  17. NAPROXEN. [Concomitant]
     Active Substance: NAPROXEN
  18. OXYGEN. [Concomitant]
     Active Substance: OXYGEN

REACTIONS (1)
  - Fluid overload [Recovered/Resolved]

NARRATIVE: CASE EVENT DATE: 20200615
